FAERS Safety Report 5810763-6 (Version None)
Quarter: 2008Q3

REPORT INFORMATION
  Report Type: 
  Country: None (occurrence: None)
  Receive Date: 20080715
  Receipt Date: 20080708
  Transmission Date: 20090109
  Serious: Yes (Hospitalization, Disabling)
  Sender: FDA-Public Use
  Company Number: US-MERCK-0705USA01326

PATIENT
  Age: 69 Year
  Sex: Female
  Weight: 68 kg

DRUGS (5)
  1. FOSAMAX [Suspect]
     Indication: OSTEOPOROSIS
     Route: 048
     Dates: start: 19970917, end: 20011003
  2. FOSAMAX [Suspect]
     Route: 048
     Dates: start: 20011003, end: 20060901
  3. [THERAPY UNSPECIFIED] [Concomitant]
     Indication: HYPERTENSION
     Route: 065
     Dates: start: 19830101
  4. METOPROLOL [Concomitant]
     Indication: HYPERTENSION
     Route: 065
     Dates: start: 19860101
  5. PRILOSEC [Concomitant]
     Indication: HERNIA
     Route: 065
     Dates: start: 19880101

REACTIONS (39)
  - ABDOMINAL PAIN LOWER [None]
  - ABDOMINAL PAIN UPPER [None]
  - ANGIOMYOLIPOMA [None]
  - ARTHROPATHY [None]
  - BACK DISORDER [None]
  - BACK PAIN [None]
  - BASAL CELL CARCINOMA [None]
  - BLOOD CHOLESTEROL INCREASED [None]
  - BONE DISORDER [None]
  - BREAST PAIN [None]
  - CERUMEN IMPACTION [None]
  - CHEST PAIN [None]
  - COMPRESSION FRACTURE [None]
  - DIABETES MELLITUS [None]
  - DIVERTICULUM [None]
  - DYSURIA [None]
  - EAR PAIN [None]
  - FISTULA [None]
  - GASTROINTESTINAL DISORDER [None]
  - GASTROOESOPHAGEAL REFLUX DISEASE [None]
  - HERPES SIMPLEX [None]
  - HIATUS HERNIA [None]
  - HYPERLIPIDAEMIA [None]
  - JOINT CONTRACTURE [None]
  - LUNG NEOPLASM [None]
  - OESOPHAGITIS [None]
  - ORAL INFECTION [None]
  - OSTEOARTHRITIS [None]
  - OSTEONECROSIS [None]
  - PAIN IN EXTREMITY [None]
  - PHARYNGOESOPHAGEAL DIVERTICULUM [None]
  - RADICULITIS [None]
  - RENAL CYST [None]
  - RESORPTION BONE INCREASED [None]
  - TEMPOROMANDIBULAR JOINT SYNDROME [None]
  - TENDON SHEATH INCISION [None]
  - TRIGGER FINGER [None]
  - TYPE 2 DIABETES MELLITUS [None]
  - URINARY TRACT INFECTION [None]
